FAERS Safety Report 7961540-1 (Version None)
Quarter: 2011Q4

REPORT INFORMATION
  Report Type: 
  Country: None (occurrence: None)
  Receive Date: 20111121
  Receipt Date: 20110922
  Transmission Date: 20120403
  Serious: No
  Sender: FDA-Public Use
  Company Number: 1000024128

PATIENT
  Age: 35 Year
  Sex: Female

DRUGS (4)
  1. METFORMIN HCL [Concomitant]
  2. VERAPAMIL [Concomitant]
  3. VIIBRYD [Suspect]
  4. VICTOZA (LIRAGLUTIDE) (LIRAGLUTIDE) [Concomitant]

REACTIONS (1)
  - HALLUCINATION [None]
